FAERS Safety Report 5195693-8 (Version None)
Quarter: 2006Q4

REPORT INFORMATION
  Report Type: 
  Country: None (occurrence: None)
  Receive Date: 20061227
  Receipt Date: 20061214
  Transmission Date: 20070319
  Serious: Yes (Hospitalization)
  Sender: FDA-Public Use
  Company Number: 2006BI014220

PATIENT
  Age: 54 Year
  Sex: Male
  Weight: 104.3273 kg

DRUGS (12)
  1. AVONEX [Suspect]
     Indication: MULTIPLE SCLEROSIS
     Dosage: 30 UG;QW;IM
     Route: 030
     Dates: start: 19990101, end: 20030801
  2. AVONEX [Suspect]
     Indication: MULTIPLE SCLEROSIS
     Dosage: 20 UG;QW;IM
     Route: 030
     Dates: start: 20030801
  3. LOPRESSOR [Concomitant]
  4. ALTACE [Concomitant]
  5. ASPIRIN [Concomitant]
  6. BEXTRA [Concomitant]
  7. ISORB [Concomitant]
  8. PROVIGIL [Concomitant]
  9. OSTEOBIOFLEX [Concomitant]
  10. EFFEXOR XR [Concomitant]
  11. LIDODERM [Concomitant]
  12. DETROL LA [Concomitant]

REACTIONS (4)
  - BLOOD CHOLESTEROL INCREASED [None]
  - CORONARY ARTERY OCCLUSION [None]
  - GAIT DISTURBANCE [None]
  - MYOCARDIAL INFARCTION [None]
